FAERS Safety Report 6778756-2 (Version None)
Quarter: 2010Q2

REPORT INFORMATION
  Report Type: 
  Country: None (occurrence: None)
  Receive Date: 20100618
  Receipt Date: 20100608
  Transmission Date: 20101027
  Serious: Yes (Other)
  Sender: FDA-Public Use
  Company Number: US-BAYER-201024951NA

PATIENT
  Sex: Female

DRUGS (2)
  1. MIRENA [Suspect]
     Indication: PREMENSTRUAL SYNDROME
     Route: 015
     Dates: start: 20090701
  2. ADDERALL XR 10 [Concomitant]
     Indication: ATTENTION DEFICIT/HYPERACTIVITY DISORDER
     Dosage: IT WAS LESS AFFECTIVE DURING MENSTRUAL CYCLES

REACTIONS (8)
  - ABDOMINAL DISTENSION [None]
  - DYSMENORRHOEA [None]
  - FATIGUE [None]
  - MOOD SWINGS [None]
  - OEDEMA PERIPHERAL [None]
  - PROCEDURAL PAIN [None]
  - VAGINAL HAEMORRHAGE [None]
  - WEIGHT INCREASED [None]
